FAERS Safety Report 5536920-4 (Version None)
Quarter: 2007Q4

REPORT INFORMATION
  Report Type: 
  Country: None (occurrence: None)
  Receive Date: 20071207
  Receipt Date: 20071204
  Transmission Date: 20080405
  Serious: Yes (Other)
  Sender: FDA-Public Use
  Company Number: PHNU2007DE04038

PATIENT
  Sex: Male

DRUGS (3)
  1. CORDINATE PLUS [Suspect]
     Indication: CARDIAC DISORDER
  2. METOPROLOL [Concomitant]
  3. MARCUMAR [Concomitant]
     Dosage: DOSAGE SIGNIFICANTLY DECREASED

REACTIONS (1)
  - INTERNATIONAL NORMALISED RATIO INCREASED [None]
